FAERS Safety Report 6509450-0 (Version None)
Quarter: 2009Q4

REPORT INFORMATION
  Report Type: 
  Country: None (occurrence: None)
  Receive Date: 20091222
  Receipt Date: 20091214
  Transmission Date: 20100525
  Serious: Yes (Death, Life-Threatening, Hospitalization)
  Sender: FDA-Public Use
  Company Number: ES-TYCO HEALTHCARE/MALLINCKRODT-T200902090

PATIENT
  Age: 44 Year
  Sex: Male

DRUGS (6)
  1. OPTIRAY ULTRAJECT 300 [Suspect]
     Dosage: 125 ML, SINGLE
     Route: 042
     Dates: start: 20091106, end: 20091106
  2. AMOXICILLIN AND CLAVULANATE POTASSIUM [Concomitant]
     Indication: PYREXIA
     Dosage: UNK
     Dates: start: 20091106
  3. HYDREA [Concomitant]
  4. OMEPRAZOL                          /00661201/ [Concomitant]
     Dosage: 40 MG, QD
  5. SUMIAL [Concomitant]
     Dosage: 30 MG, 12 HOURS
  6. SINTROM [Concomitant]

REACTIONS (1)
  - LARYNGEAL OEDEMA [None]
